FAERS Safety Report 4709434-9 (Version None)
Quarter: 2005Q3

REPORT INFORMATION
  Report Type: 
  Country: None (occurrence: None)
  Receive Date: 20050707
  Receipt Date: 20050707
  Transmission Date: 20060218
  Serious: Yes (Other)
  Sender: FDA-Public Use
  Company Number: None

PATIENT
  Sex: Male
  Weight: 55.4 kg

DRUGS (3)
  1. CYCLOSPORINE [Suspect]
     Indication: BONE MARROW TRANSPLANT
     Dosage: 75 BID PO
     Route: 048
     Dates: start: 20050320
  2. CYCLOSPORINE [Suspect]
     Indication: BONE MARROW TRANSPLANT
     Dosage: 75 BID PO
     Route: 048
     Dates: start: 20050523
  3. CYCLOSPORINE [Suspect]
     Indication: BONE MARROW TRANSPLANT
     Dosage: 100 MG BID PO
     Route: 048
     Dates: start: 20050320

REACTIONS (1)
  - DRUG LEVEL CHANGED [None]
